FAERS Safety Report 13495458 (Version 1)
Quarter: 2017Q2

REPORT INFORMATION
  Report Type: Report from Study
  Country: BR (occurrence: BR)
  Receive Date: 20170428
  Receipt Date: 20170428
  Transmission Date: 20170830
  Serious: Yes (Death, Other)
  Sender: FDA-Public Use
  Company Number: PHHY2017BR062880

PATIENT
  Age: 61 Year
  Sex: Male

DRUGS (1)
  1. ACLASTA [Suspect]
     Active Substance: ZOLEDRONIC ACID
     Indication: OSTEOPOROSIS
     Dosage: 5 MG, Q12MO
     Route: 042
     Dates: start: 20121128

REACTIONS (4)
  - H1N1 influenza [Unknown]
  - Pneumonia [Unknown]
  - Leukaemia [Unknown]
  - Death [Fatal]

NARRATIVE: CASE EVENT DATE: 20160405
